FAERS Safety Report 10248835 (Version 1)
Quarter: 2014Q2

REPORT INFORMATION
  Report Type: Report from Study
  Country: US (occurrence: US)
  Receive Date: 20140620
  Receipt Date: 20140620
  Transmission Date: 20141212
  Serious: No
  Sender: FDA-Public Use
  Company Number: PHEH2014US012375

PATIENT
  Age: 74 Year
  Sex: Male

DRUGS (13)
  1. TASIGNA [Suspect]
     Indication: CHRONIC MYELOID LEUKAEMIA
     Dosage: 300 MG, BID
     Route: 048
     Dates: start: 20140417
  2. COLCRYS [Concomitant]
     Dosage: UNK UKN, UNK
  3. LAMOTRIGINE [Concomitant]
     Dosage: UNK UKN, UNK
  4. OXYCODONE [Concomitant]
     Dosage: UNK UKN, UNK
  5. PRAVASTATIN [Concomitant]
     Dosage: UNK UKN, UNK
  6. CLONIDINE [Concomitant]
     Dosage: UNK UKN, UNK
  7. AMLODIPINE [Concomitant]
     Dosage: UNK UKN, UNK
  8. GLYBURIDE [Concomitant]
     Dosage: UNK UKN, UNK
  9. MVI [Concomitant]
     Dosage: UNK UKN, UNK
  10. POTASSIUM [Concomitant]
     Dosage: UNK UKN, UNK
  11. LOSARTAN [Concomitant]
     Dosage: UNK UKN, UNK
  12. ASPIRIN [Concomitant]
     Dosage: UNK UKN, UNK
  13. METHYLPREDNISOLONE [Concomitant]
     Dosage: UNK UKN, UNK

REACTIONS (1)
  - Diarrhoea [Recovering/Resolving]
